FAERS Safety Report 13936372 (Version 1)
Quarter: 2017Q3

REPORT INFORMATION
  Report Type: Spontaneous
  Country: US (occurrence: US)
  Receive Date: 20170905
  Receipt Date: 20170905
  Transmission Date: 20171127
  Serious: Yes (Hospitalization, Other)
  Sender: FDA-Public Use
  Company Number: None

PATIENT
  Age: 33 Year
  Sex: Male

DRUGS (1)
  1. CLONAZOLAM [Suspect]
     Active Substance: CLONAZOLAM
     Indication: OFF LABEL USE
     Route: 048

REACTIONS (6)
  - Product use issue [None]
  - Drug withdrawal syndrome [None]
  - Self-medication [None]
  - Psychotic disorder [None]
  - Therapy cessation [None]
  - Generalised tonic-clonic seizure [None]

NARRATIVE: CASE EVENT DATE: 20170823
